FAERS Safety Report 9913950 (Version 2)
Quarter: 2014Q1

REPORT INFORMATION
  Report Type: Report from Study
  Country: US (occurrence: US)
  Receive Date: 20140220
  Receipt Date: 20140220
  Transmission Date: 20141002
  Serious: Yes (Life-Threatening, Other)
  Sender: FDA-Public Use
  Company Number: US-ACTELION-A-US2013-92464

PATIENT
  Age: 56 Year
  Sex: Female

DRUGS (5)
  1. TRACLEER [Suspect]
     Indication: PORTOPULMONARY HYPERTENSION
     Dosage: 62.5 MG, BID
     Route: 048
     Dates: start: 201401, end: 201401
  2. ADCIRCA [Concomitant]
     Dosage: 40 MG, QD
  3. TREPROSTINIL [Concomitant]
     Dosage: 9 PUFF, QID
  4. LASIX [Concomitant]
     Dosage: 20 MG, BID
  5. ALDACTONE [Concomitant]
     Dosage: 50 MG, TID

REACTIONS (11)
  - Renal failure acute [Unknown]
  - Swelling [Unknown]
  - Local swelling [Recovered/Resolved]
  - Swelling face [Recovered/Resolved]
  - Dyspnoea [Recovered/Resolved]
  - Oropharyngeal pain [Unknown]
  - Pain [Unknown]
  - Haemoglobin decreased [Unknown]
  - Fluid retention [Unknown]
  - Generalised oedema [Unknown]
  - Abdominal distension [Unknown]
